FAERS Safety Report 14241960 (Version 2)
Quarter: 2018Q3

REPORT INFORMATION
  Report Type: Report from Study
  Country: GB (occurrence: GB)
  Receive Date: 20171201
  Receipt Date: 20180719
  Transmission Date: 20181010
  Serious: Yes (Other)
  Sender: FDA-Public Use
  Company Number: GB-ROCHE-ITM201503IM011513

PATIENT
  Sex: Male

DRUGS (4)
  1. PANTOPRAZOLE [Concomitant]
     Active Substance: PANTOPRAZOLE
  2. WARFARIN [Concomitant]
     Active Substance: WARFARIN
  3. OXYGEN. [Concomitant]
     Active Substance: OXYGEN
  4. ESBRIET [Suspect]
     Active Substance: PIRFENIDONE
     Indication: IDIOPATHIC PULMONARY FIBROSIS
     Route: 065

REACTIONS (36)
  - Pulmonary embolism [Not Recovered/Not Resolved]
  - Myocardial infarction [Unknown]
  - Psychiatric symptom [Unknown]
  - Inappropriate schedule of drug administration [Unknown]
  - Labyrinthitis [Unknown]
  - Rash [Not Recovered/Not Resolved]
  - Vomiting [Not Recovered/Not Resolved]
  - Productive cough [Unknown]
  - Lower respiratory tract infection [Not Recovered/Not Resolved]
  - Nausea [Not Recovered/Not Resolved]
  - Dyspnoea [Unknown]
  - Wound [Unknown]
  - Weight decreased [Unknown]
  - Tachycardia [Unknown]
  - Gastrooesophageal reflux disease [Not Recovered/Not Resolved]
  - Lethargy [Not Recovered/Not Resolved]
  - Somnolence [Not Recovered/Not Resolved]
  - Gastrooesophageal reflux disease [Unknown]
  - Vertigo [Unknown]
  - Blood potassium decreased [Unknown]
  - Angina pectoris [Unknown]
  - Haemoptysis [Not Recovered/Not Resolved]
  - Hepatic enzyme increased [Unknown]
  - Feeling abnormal [Unknown]
  - Stress [Unknown]
  - Hypotension [Unknown]
  - Chest pain [Unknown]
  - Fatigue [Not Recovered/Not Resolved]
  - Dizziness [Not Recovered/Not Resolved]
  - Loss of consciousness [Not Recovered/Not Resolved]
  - Headache [Not Recovered/Not Resolved]
  - Photophobia [Not Recovered/Not Resolved]
  - Wound complication [Unknown]
  - Decreased appetite [Unknown]
  - Blood test abnormal [Unknown]
  - Blood sodium decreased [Unknown]

NARRATIVE: CASE EVENT DATE: 201412
